FAERS Safety Report 8546582-X (Version None)
Quarter: 2012Q3

REPORT INFORMATION
  Report Type: 
  Country: None (occurrence: None)
  Receive Date: 20120727
  Receipt Date: 20111228
  Transmission Date: 20120928
  Serious: No
  Sender: FDA-Public Use
  Company Number: US-ASTRAZENECA-2011SE78779

PATIENT
  Age: 18745 Day
  Sex: Female

DRUGS (4)
  1. SEROQUEL [Suspect]
     Dosage: 50 MG BID TO 400 MG QHS
     Route: 048
     Dates: start: 20020423
  2. ZOLOFT [Concomitant]
     Dates: start: 20020218
  3. DEPAKOTE [Concomitant]
     Dates: start: 20020423
  4. REMERON [Concomitant]
     Dates: start: 20020218, end: 20020423

REACTIONS (1)
  - SCHIZOAFFECTIVE DISORDER [None]
